FAERS Safety Report 11568083 (Version 1)
Quarter: 2015Q3

REPORT INFORMATION
  Report Type: Spontaneous
  Country: NL (occurrence: NL)
  Receive Date: 20150929
  Receipt Date: 20150929
  Transmission Date: 20151125
  Serious: Yes (Hospitalization)
  Sender: FDA-Public Use
  Company Number: NL-009507513-1509NLD012543

PATIENT
  Age: 56 Year
  Sex: Female
  Weight: 75 kg

DRUGS (3)
  1. SIMVASTATIN. [Suspect]
     Active Substance: SIMVASTATIN
     Indication: BLOOD CHOLESTEROL INCREASED
     Dosage: ONCE PER DAY ONE UNIT(S)
     Route: 048
     Dates: start: 20141115
  2. CLOPIDOGREL [Concomitant]
     Active Substance: CLOPIDOGREL BISULFATE
     Dosage: ONCE PER DAY ONE UNIT(S)
     Route: 048
     Dates: start: 20141115
  3. LISINOPRIL. [Concomitant]
     Active Substance: LISINOPRIL
     Dosage: ONCE PER DAY ONE UNIT(S)
     Route: 048
     Dates: start: 2005

REACTIONS (2)
  - Chest pain [Recovered/Resolved]
  - Asthenia [Recovering/Resolving]

NARRATIVE: CASE EVENT DATE: 20141115
